FAERS Safety Report 21027727 (Version 1)
Quarter: 2022Q2

REPORT INFORMATION
  Report Type: Spontaneous
  Country: US (occurrence: None)
  Receive Date: 20220630
  Receipt Date: 20220630
  Transmission Date: 20220720
  Serious: No
  Sender: FDA-Public Use
  Company Number: US-ALM-HQ-US-2022-0883

PATIENT
  Sex: Female

DRUGS (2)
  1. KLISYRI [Suspect]
     Active Substance: TIRBANIBULIN
     Indication: Actinic keratosis
     Route: 061
     Dates: start: 202202
  2. KLISYRI [Suspect]
     Active Substance: TIRBANIBULIN
     Route: 061
     Dates: start: 20220502

REACTIONS (4)
  - Product use issue [Unknown]
  - Accidental exposure to product [Unknown]
  - Eye pain [Recovered/Resolved]
  - Ocular hyperaemia [Unknown]
